FAERS Safety Report 6857996-8 (Version None)
Quarter: 2010Q2

REPORT INFORMATION
  Report Type: 
  Country: None (occurrence: None)
  Receive Date: 20100630
  Receipt Date: 20100429
  Transmission Date: 20101027
  Serious: No
  Sender: FDA-Public Use
  Company Number: 1000013467

PATIENT
  Age: 76 Year
  Sex: Female

DRUGS (4)
  1. BYSTOLIC [Suspect]
     Indication: HYPERTENSION
     Dosage: 10 MG (10 MG, 1 IN 1 D), ORAL
     Route: 048
     Dates: start: 20100420
  2. BYSTOLIC [Suspect]
     Indication: VENOUS INSUFFICIENCY
     Dosage: 10 MG (10 MG, 1 IN 1 D), ORAL
     Route: 048
     Dates: start: 20100420
  3. GRAPE SEED [Concomitant]
  4. VITAMINS [Concomitant]

REACTIONS (7)
  - ASTHENIA [None]
  - DIZZINESS [None]
  - EAR PAIN [None]
  - HEADACHE [None]
  - NAUSEA [None]
  - TREMOR [None]
  - URINARY TRACT INFECTION [None]
